FAERS Safety Report 15448289 (Version 1)
Quarter: 2018Q3

REPORT INFORMATION
  Report Type: Report from Study
  Country: None (occurrence: CA)
  Receive Date: 20180929
  Receipt Date: 20180929
  Transmission Date: 20181010
  Serious: Yes (Hospitalization)
  Sender: FDA-Public Use
  Company Number: CA-ABBVIE-18K-028-2500338-00

PATIENT
  Sex: Female

DRUGS (1)
  1. HUMIRA [Suspect]
     Active Substance: ADALIMUMAB
     Indication: CROHN^S DISEASE
     Route: 058
     Dates: start: 20151020

REACTIONS (7)
  - Pulmonary hypertension [Unknown]
  - Chronic obstructive pulmonary disease [Not Recovered/Not Resolved]
  - Oxygen saturation abnormal [Unknown]
  - Hypotension [Unknown]
  - Frequent bowel movements [Recovering/Resolving]
  - Pain [Recovering/Resolving]
  - Defaecation urgency [Recovering/Resolving]
